FAERS Safety Report 6339817-5 (Version None)
Quarter: 2009Q3

REPORT INFORMATION
  Report Type: 
  Country: None (occurrence: None)
  Receive Date: 20090903
  Receipt Date: 20090827
  Transmission Date: 20100115
  Serious: Yes (Hospitalization)
  Sender: FDA-Public Use
  Company Number: PHBS2003GB04436

PATIENT
  Age: 54 Year
  Sex: Female

DRUGS (1)
  1. DICLOFENAC SODIUM [Suspect]
     Indication: ARTHRALGIA
     Route: 048

REACTIONS (8)
  - ABDOMINAL MASS [None]
  - ABDOMINAL PAIN LOWER [None]
  - COLONIC STENOSIS [None]
  - IRON DEFICIENCY ANAEMIA [None]
  - LARGE INTESTINAL HAEMORRHAGE [None]
  - MICROCYTIC ANAEMIA [None]
  - OCCULT BLOOD POSITIVE [None]
  - SERUM FERRITIN DECREASED [None]
